FAERS Safety Report 9405814 (Version 1)
Quarter: 2013Q3

REPORT INFORMATION
  Report Type: Spontaneous
  Country: US (occurrence: US)
  Receive Date: 20130717
  Receipt Date: 20130717
  Transmission Date: 20140515
  Serious: No
  Sender: FDA-Public Use
  Company Number: US-009507513-1307USA004100

PATIENT
  Age: 8 Year
  Sex: Male

DRUGS (3)
  1. ASMANEX TWISTHALER [Suspect]
     Indication: ASTHMA
     Dosage: 1 DF, BID
     Route: 055
     Dates: start: 20130603
  2. ASMANEX TWISTHALER [Suspect]
     Indication: SEASONAL ALLERGY
  3. FLONASE [Concomitant]

REACTIONS (5)
  - Wheezing [Recovered/Resolved]
  - Cough [Recovered/Resolved]
  - Product quality issue [Unknown]
  - Inappropriate schedule of drug administration [Unknown]
  - Underdose [Unknown]
